FAERS Safety Report 9458372 (Version 1)
Quarter: 2013Q3

REPORT INFORMATION
  Report Type: Spontaneous
  Country: JP (occurrence: JP)
  Receive Date: 20130814
  Receipt Date: 20130814
  Transmission Date: 20140515
  Serious: Yes (Hospitalization)
  Sender: FDA-Public Use
  Company Number: JP-009507513-1308JPN005055

PATIENT
  Age: 79 Year
  Sex: Male

DRUGS (10)
  1. BETAMETHASONE SODIUM PHOSPHATE [Suspect]
     Indication: PRURIGO
     Dosage: 1.25 MG, QD
     Route: 048
  2. BAKTAR [Suspect]
     Indication: STAPHYLOCOCCAL INFECTION
     Dosage: 4 DF, QD
     Route: 048
     Dates: start: 20130531, end: 20130604
  3. WARFARIN [Suspect]
     Indication: INTRACRANIAL VENOUS SINUS THROMBOSIS
     Dosage: 3.5 MG, QD
     Route: 048
     Dates: start: 201201, end: 20130604
  4. WARFARIN [Suspect]
     Indication: DEEP VEIN THROMBOSIS
  5. FERROMIA [Concomitant]
     Indication: HYPOCHROMIC ANAEMIA
     Dosage: 0.6 G, QD
     Route: 048
  6. GASTER [Concomitant]
     Indication: GASTRITIS
     Dosage: 40 MG, QD
     Route: 048
  7. RISPERDAL [Concomitant]
     Indication: DEMENTIA ALZHEIMER^S TYPE
     Dosage: 0.5 MG, QD
     Route: 048
  8. THYRADIN-S [Concomitant]
     Indication: HYPOTHYROIDISM
     Dosage: 12.5 MICROGRAM, QD
     Route: 048
  9. ZYVOX [Concomitant]
     Indication: BACTERAEMIA
     Dosage: 1200 MG, QD
     Route: 048
     Dates: start: 20130510, end: 20130530
  10. ZYVOX [Concomitant]
     Indication: STAPHYLOCOCCAL INFECTION

REACTIONS (1)
  - International normalised ratio increased [Recovered/Resolved]
